FAERS Safety Report 9814945 (Version 1)
Quarter: 2014Q1

REPORT INFORMATION
  Report Type: Spontaneous
  Country: US (occurrence: US)
  Receive Date: 20140113
  Receipt Date: 20140113
  Transmission Date: 20141002
  Serious: No
  Sender: FDA-Public Use
  Company Number: US-009507513-1401USA003033

PATIENT
  Age: 22 Year
  Sex: Female

DRUGS (5)
  1. ISENTRESS [Suspect]
     Dosage: TOTAL DAILY DOSE 800(UNIT UNK)
     Route: 048
  2. NEVIRAPINE [Suspect]
     Dosage: TOTAL DAILY DOSE 400(UNIT UNK)
     Route: 048
  3. EMTRICITABINE (+) TENOFOVIR DISOPROXIL FUMARATE [Suspect]
     Dosage: TOTAL DAILY DOSE 1(UNIT UNK)
     Route: 048
  4. LAMIVUDINE (+) ZIDOVUDINE [Suspect]
     Dosage: TOTAL DAILY DOSE 2(UNIT UNK)
     Route: 048
  5. LOPINAVIR (+) RITONAVIR [Suspect]
     Dosage: TOTAL DAILY DOSE 4(UNIT UNK)
     Route: 048

REACTIONS (1)
  - Exposure during pregnancy [Unknown]
